FAERS Safety Report 10899887 (Version 2)
Quarter: 2015Q1

REPORT INFORMATION
  Report Type: Spontaneous
  Country: US (occurrence: US)
  Receive Date: 20150310
  Receipt Date: 20150325
  Transmission Date: 20150721
  Serious: Yes (Hospitalization, Other)
  Sender: FDA-Public Use
  Company Number: US-GLAXOSMITHKLINE-US2015030481

PATIENT
  Age: 77 Year
  Sex: Male

DRUGS (1)
  1. AVODART [Suspect]
     Active Substance: DUTASTERIDE
     Indication: PRODUCT USED FOR UNKNOWN INDICATION
     Dosage: 0.5 MG, QOD
     Dates: start: 2008

REACTIONS (4)
  - Bladder cancer [Unknown]
  - Urinary retention [Unknown]
  - Abdominal pain upper [Unknown]
  - Hernia [Unknown]

NARRATIVE: CASE EVENT DATE: 20150309
